FAERS Safety Report 5935839-4 (Version None)
Quarter: 2008Q4

REPORT INFORMATION
  Report Type: 
  Country: None (occurrence: None)
  Receive Date: 20081030
  Receipt Date: 20081027
  Transmission Date: 20090506
  Serious: Yes (Death)
  Sender: FDA-Public Use
  Company Number: PHHY2008MX25987

PATIENT
  Sex: Female

DRUGS (3)
  1. DIOVAN [Suspect]
     Indication: HYPERTENSION
     Dosage: 160 MG, QD2SDO
     Route: 048
  2. LERCANIDIPINE [Concomitant]
  3. LASIX [Concomitant]

REACTIONS (1)
  - CARDIAC ARREST [None]
